FAERS Safety Report 12423108 (Version 1)
Quarter: 2016Q2

REPORT INFORMATION
  Report Type: Spontaneous
  Country: US (occurrence: None)
  Receive Date: 20160531
  Receipt Date: 20160531
  Transmission Date: 20160815
  Serious: Yes (Death, Hospitalization)
  Sender: FDA-Public Use
  Company Number: None

PATIENT
  Age: 67 Year
  Sex: Male
  Weight: 63.5 kg

DRUGS (1)
  1. DICLOFENAC SODIUM DR, 75 MG CARLSBAD TECHNOLOGY INC. [Suspect]
     Active Substance: DICLOFENAC SODIUM
     Indication: ARTHRALGIA
     Route: 048
     Dates: start: 20160217, end: 20160219

REACTIONS (3)
  - Abdominal pain upper [None]
  - Aortic aneurysm [None]
  - Pallor [None]

NARRATIVE: CASE EVENT DATE: 20160219
